FAERS Safety Report 19614191 (Version 1)
Quarter: 2021Q3

REPORT INFORMATION
  Report Type: Spontaneous
  Country: US (occurrence: US)
  Receive Date: 20210727
  Receipt Date: 20210727
  Transmission Date: 20211014
  Serious: Yes (Hospitalization)
  Sender: FDA-Public Use
  Company Number: None

PATIENT
  Sex: Male
  Weight: 101.25 kg

DRUGS (11)
  1. ZOLADEX [Concomitant]
     Active Substance: GOSERELIN ACETATE
  2. KEFLEX [Concomitant]
     Active Substance: CEPHALEXIN
  3. CASODEX [Concomitant]
     Active Substance: BICALUTAMIDE
  4. ABIRATERONE. [Suspect]
     Active Substance: ABIRATERONE ACETATE
     Indication: PROSTATE CANCER
     Route: 048
  5. OMEPRAZOLE. [Concomitant]
     Active Substance: OMEPRAZOLE
  6. HYDROCODONE BITARTRATE ER [Concomitant]
  7. NORCO [Concomitant]
     Active Substance: ACETAMINOPHEN\HYDROCODONE BITARTRATE
  8. FLONASE [Concomitant]
     Active Substance: FLUTICASONE PROPIONATE
  9. TOVIAZ [Concomitant]
     Active Substance: FESOTERODINE FUMARATE
  10. CEPHALEXIN. [Concomitant]
     Active Substance: CEPHALEXIN
  11. DILAUDID [Concomitant]
     Active Substance: HYDROMORPHONE HYDROCHLORIDE

REACTIONS (1)
  - Hospitalisation [None]
